FAERS Safety Report 23203374 (Version 1)
Quarter: 2023Q4

REPORT INFORMATION
  Report Type: Spontaneous
  Country: US (occurrence: US)
  Receive Date: 20231120
  Receipt Date: 20231120
  Transmission Date: 20240110
  Serious: Yes (Death)
  Sender: FDA-Public Use
  Company Number: ENDG23-06035

PATIENT
  Age: 80 Year
  Sex: Male

DRUGS (1)
  1. BOSENTAN [Suspect]
     Active Substance: BOSENTAN
     Indication: Pulmonary hypertension
     Dosage: 62.5 MILLIGRAM, BID
     Route: 048
     Dates: start: 20231017, end: 20231107

REACTIONS (1)
  - Death [Fatal]

NARRATIVE: CASE EVENT DATE: 20231107
